FAERS Safety Report 6450430-1 (Version None)
Quarter: 2009Q4

REPORT INFORMATION
  Report Type: 
  Country: None (occurrence: None)
  Receive Date: 20091116
  Receipt Date: 20090923
  Transmission Date: 20100525
  Serious: No
  Sender: FDA-Public Use
  Company Number: WAES 0903USA02009

PATIENT

DRUGS (7)
  1. ISENTRESS [Suspect]
     Dosage: PO
     Route: 048
  2. ABACAVIR SULFATE [Concomitant]
  3. DARUNAVIR (+) RITONAVIR [Concomitant]
  4. ENFUVIRTIDE [Concomitant]
  5. ETRAVIRINE [Concomitant]
  6. LAMIVUDINE [Concomitant]
  7. ZIDOVUDINE [Concomitant]

REACTIONS (1)
  - PATHOGEN RESISTANCE [None]
